FAERS Safety Report 11281771 (Version 2)
Quarter: 2015Q3

REPORT INFORMATION
  Report Type: Spontaneous
  Country: US (occurrence: US)
  Receive Date: 20150717
  Receipt Date: 20150805
  Transmission Date: 20151125
  Serious: No
  Sender: FDA-Public Use
  Company Number: US-TEVA-578551USA

PATIENT
  Age: 66 Year
  Sex: Male

DRUGS (1)
  1. COPAXONE [Suspect]
     Active Substance: GLATIRAMER ACETATE
     Indication: MULTIPLE SCLEROSIS
     Route: 065
     Dates: start: 20150124

REACTIONS (4)
  - Chills [Unknown]
  - Fatigue [Unknown]
  - Influenza like illness [Unknown]
  - Somnolence [Unknown]

NARRATIVE: CASE EVENT DATE: 201507
